FAERS Safety Report 12768880 (Version 2)
Quarter: 2018Q1

REPORT INFORMATION
  Report Type: Spontaneous
  Country: US (occurrence: US)
  Receive Date: 20160921
  Receipt Date: 20180129
  Transmission Date: 20180508
  Serious: No
  Sender: FDA-Public Use
  Company Number: US-JAZZ-2016-US-010479

PATIENT
  Age: 54 Year
  Sex: Female

DRUGS (23)
  1. XYREM [Suspect]
     Active Substance: SODIUM OXYBATE
     Indication: NARCOLEPSY
     Dosage: 4.5 G, BID
     Route: 048
     Dates: start: 201008, end: 201012
  2. XYREM [Suspect]
     Active Substance: SODIUM OXYBATE
     Dosage: 6 G, BID
     Route: 048
     Dates: start: 201603
  3. DESIPRAMINE [Concomitant]
     Active Substance: DESIPRAMINE
  4. MULTAQ [Concomitant]
     Active Substance: DRONEDARONE
  5. COREG [Concomitant]
     Active Substance: CARVEDILOL
  6. IBUPROFEN. [Concomitant]
     Active Substance: IBUPROFEN
  7. PRILOSEC [Concomitant]
     Active Substance: OMEPRAZOLE MAGNESIUM
  8. TYLENOL [Concomitant]
     Active Substance: ACETAMINOPHEN
  9. MULTIVITAMIN [Concomitant]
     Active Substance: VITAMINS
  10. CALCIUM + VITAMIN D [Concomitant]
     Active Substance: CALCIUM\VITAMIN D
  11. BRINTELLIX [Concomitant]
     Active Substance: VORTIOXETINE HYDROBROMIDE
  12. GABAPENTIN. [Concomitant]
     Active Substance: GABAPENTIN
  13. CLARITIN [Concomitant]
     Active Substance: LORATADINE
  14. GARLIC. [Concomitant]
     Active Substance: GARLIC
  15. FLAXSEED [Concomitant]
     Active Substance: FLAX SEED
  16. XYREM [Suspect]
     Active Substance: SODIUM OXYBATE
     Indication: CATAPLEXY
     Dosage: DOSE ADJUSTMENTS
     Route: 048
     Dates: start: 201012, end: 201603
  17. CINNAMON. [Concomitant]
     Active Substance: CINNAMON
  18. LOSARTAN AND HYDROCHLOROTHIAZIDE [Concomitant]
     Active Substance: HYDROCHLOROTHIAZIDE\LOSARTAN POTASSIUM
  19. OXAZEPAM. [Concomitant]
     Active Substance: OXAZEPAM
  20. TRIAZOLAM. [Concomitant]
     Active Substance: TRIAZOLAM
  21. LEVOTHYROXIN [Concomitant]
     Active Substance: LEVOTHYROXINE
  22. STRATTERA [Concomitant]
     Active Substance: ATOMOXETINE HYDROCHLORIDE
  23. PRAVASTATIN. [Concomitant]
     Active Substance: PRAVASTATIN

REACTIONS (2)
  - Pollakiuria [Recovering/Resolving]
  - Micturition urgency [Not Recovered/Not Resolved]

NARRATIVE: CASE EVENT DATE: 201604
